FAERS Safety Report 8575279-5 (Version None)
Quarter: 2012Q2

REPORT INFORMATION
  Report Type: 
  Country: None (occurrence: None)
  Receive Date: 20120423
  Receipt Date: 20091223
  Transmission Date: 20120825
  Serious: Yes (Hospitalization, Other)
  Sender: FDA-Public Use
  Company Number: PHEH2009US13422

PATIENT
  Age: 47 Year
  Sex: Female

DRUGS (3)
  1. PROCRIT [Suspect]
     Dosage: INJECTION NOS
  2. EXJADE [Suspect]
     Indication: IRON OVERLOAD
     Dosage: 1500 MG, QD, ORAL
     Route: 048
     Dates: start: 20090623, end: 20091015
  3. EXJADE [Suspect]
     Indication: SICKLE CELL ANAEMIA
     Dosage: 1500 MG, QD, ORAL
     Route: 048
     Dates: start: 20090623, end: 20091015

REACTIONS (3)
  - CHEST PAIN [None]
  - SICKLE CELL ANAEMIA WITH CRISIS [None]
  - PAIN [None]
